FAERS Safety Report 15114717 (Version 1)
Quarter: 2018Q2

REPORT INFORMATION
  Report Type: Spontaneous
  Country: US (occurrence: US)
  Receive Date: 20180612
  Receipt Date: 20180612
  Transmission Date: 20180711
  Serious: No
  Sender: FDA-Public Use
  Company Number: None

PATIENT
  Age: 76 Year
  Sex: Female
  Weight: 64.41 kg

DRUGS (15)
  1. LISINOPRIL. [Concomitant]
     Active Substance: LISINOPRIL
  2. HYALURONIC ACID [Concomitant]
     Active Substance: HYALURONIC ACID
  3. VIT. B6 [Concomitant]
  4. FISH OIL [Concomitant]
     Active Substance: FISH OIL
  5. AMLODIPINE [Concomitant]
     Active Substance: AMLODIPINE BESYLATE
  6. ATOVASTATIN [Concomitant]
     Active Substance: ATORVASTATIN
  7. ACCU-CHEK [Concomitant]
  8. CALCIUM [Concomitant]
     Active Substance: CALCIUM
  9. ASPIRIN. [Concomitant]
     Active Substance: ASPIRIN
  10. VIT. D [Concomitant]
  11. ACARBOSE. [Concomitant]
     Active Substance: ACARBOSE
  12. GLIPIZIDE. [Concomitant]
     Active Substance: GLIPIZIDE
  13. MULTI-VIT. [Concomitant]
  14. GLUCOSAMIN [Concomitant]
  15. METFORMIN [Suspect]
     Active Substance: METFORMIN HYDROCHLORIDE
     Indication: GLYCOSYLATED HAEMOGLOBIN INCREASED
     Dosage: 3 PILLS 3 DAILY BY MOUTH?
     Route: 048
     Dates: start: 20180422, end: 20180429

REACTIONS (3)
  - Vomiting [None]
  - Somnolence [None]
  - Fatigue [None]

NARRATIVE: CASE EVENT DATE: 20180422
